FAERS Safety Report 24813731 (Version 2)
Quarter: 2025Q1

REPORT INFORMATION
  Report Type: Spontaneous
  Country: US (occurrence: US)
  Receive Date: 20250107
  Receipt Date: 20250113
  Transmission Date: 20250409
  Serious: No
  Sender: ALEXION PHARMACEUTICALS
  Company Number: US-AstraZeneca-CH-00779335A

PATIENT
  Age: 41 Year

DRUGS (12)
  1. AIRSUPRA [Suspect]
     Active Substance: ALBUTEROL SULFATE\BUDESONIDE
     Indication: Asthma
  2. AIRSUPRA [Suspect]
     Active Substance: ALBUTEROL SULFATE\BUDESONIDE
     Route: 055
  3. AIRSUPRA [Suspect]
     Active Substance: ALBUTEROL SULFATE\BUDESONIDE
  4. AIRSUPRA [Suspect]
     Active Substance: ALBUTEROL SULFATE\BUDESONIDE
     Route: 055
  5. TRAMADOL [Concomitant]
     Active Substance: TRAMADOL
     Route: 065
  6. TRAMADOL [Concomitant]
     Active Substance: TRAMADOL
     Route: 065
  7. WELLBUTRIN [Concomitant]
     Active Substance: BUPROPION HYDROCHLORIDE
     Route: 065
  8. WELLBUTRIN [Concomitant]
     Active Substance: BUPROPION HYDROCHLORIDE
     Route: 065
  9. LEUPROLIDE [Concomitant]
     Active Substance: LEUPROLIDE
     Indication: Breast cancer
     Route: 065
  10. LEUPROLIDE [Concomitant]
     Active Substance: LEUPROLIDE
     Route: 065
  11. ANASTROZOLE [Concomitant]
     Active Substance: ANASTROZOLE
     Indication: Breast cancer
     Route: 065
  12. ANASTROZOLE [Concomitant]
     Active Substance: ANASTROZOLE
     Route: 065

REACTIONS (5)
  - Dizziness [Recovered/Resolved]
  - Thirst [Recovered/Resolved]
  - Flushing [Recovered/Resolved]
  - Hangover [Recovered/Resolved]
  - Illness [Recovered/Resolved]
